FAERS Safety Report 17327134 (Version 1)
Quarter: 2020Q1

REPORT INFORMATION
  Report Type: Spontaneous
  Country: GB (occurrence: GB)
  Receive Date: 20200127
  Receipt Date: 20200127
  Transmission Date: 20200409
  Serious: Yes (Life-Threatening, Hospitalization, Other)
  Sender: FDA-Public Use
  Company Number: GB-GALDERMA-GB2020003619

PATIENT
  Age: 43 Year
  Sex: Female

DRUGS (1)
  1. BRIMONIDINE [Suspect]
     Active Substance: BRIMONIDINE TARTRATE
     Indication: ERYTHEMATOTELANGIECTATIC ROSACEA
     Dosage: 3MG/G
     Route: 061
     Dates: start: 20190914, end: 20191007

REACTIONS (3)
  - Acute myocardial infarction [Unknown]
  - Coronary artery dissection [Recovered/Resolved]
  - Arteriosclerosis coronary artery [Unknown]

NARRATIVE: CASE EVENT DATE: 20191007
